FAERS Safety Report 7076354-7 (Version None)
Quarter: 2010Q4

REPORT INFORMATION
  Report Type: 
  Country: None (occurrence: None)
  Receive Date: 20101021
  Receipt Date: 20101011
  Transmission Date: 20110411
  Serious: Yes (Death)
  Sender: FDA-Public Use
  Company Number: OSCN-PR-1010S-0265

PATIENT
  Sex: Male

DRUGS (2)
  1. OMNISCAN [Suspect]
     Indication: PRODUCT USED FOR UNKNOWN INDICATION
     Dosage: SINGLE DOSE
     Dates: start: 20060519, end: 20060519
  2. GADOLINIUM (UNSPECIFIED) [Suspect]
     Dosage: SINGLE DOSE
     Dates: start: 19980103, end: 19980103

REACTIONS (1)
  - NEPHROGENIC SYSTEMIC FIBROSIS [None]
